FAERS Safety Report 9988729 (Version 1)
Quarter: 2013Q4

REPORT INFORMATION
  Report Type: Spontaneous
  Country: US (occurrence: None)
  Receive Date: 20131003
  Receipt Date: 20131003
  Transmission Date: 20140711
  Serious: Yes (Other)
  Sender: FDA-Public Use
  Company Number: ADR-2013-01535

PATIENT
  Age: 47 Year
  Sex: Female

DRUGS (5)
  1. COMPOUNDED BACLOFEN [Concomitant]
     Indication: PAIN
  2. BACLOFEN [Suspect]
     Indication: PAIN
  3. DILAUDID [Suspect]
  4. DILAUDID [Concomitant]
  5. BUPIVACAINE [Concomitant]

REACTIONS (4)
  - Pain [None]
  - Hypoaesthesia [None]
  - Muscular weakness [None]
  - Compression fracture [None]
